FAERS Safety Report 10901205 (Version 1)
Quarter: 2015Q1

REPORT INFORMATION
  Report Type: Spontaneous
  Country: US (occurrence: None)
  Receive Date: 20150303
  Receipt Date: 20150303
  Transmission Date: 20150721
  Serious: No
  Sender: FDA-Public Use
  Company Number: None

PATIENT
  Age: 80 Year
  Sex: Male
  Weight: 95.9 kg

DRUGS (2)
  1. ACETAMINOPHEN/OXYCODONE [Suspect]
     Active Substance: ACETAMINOPHEN\OXYCODONE HYDROCHLORIDE
     Indication: PAIN
     Route: 048
     Dates: start: 20150212, end: 20150223
  2. LORAZEPAM. [Suspect]
     Active Substance: LORAZEPAM
     Indication: AGITATION
     Dosage: 0.5 MG, BID, PO?
     Route: 048
     Dates: start: 20150221, end: 20150223

REACTIONS (9)
  - Confusional state [None]
  - Depression [None]
  - Hypotension [None]
  - Lethargy [None]
  - Pallor [None]
  - Unresponsive to stimuli [None]
  - Cold sweat [None]
  - Blood glucose increased [None]
  - Sedation [None]

NARRATIVE: CASE EVENT DATE: 20150222
